FAERS Safety Report 25342479 (Version 1)
Quarter: 2025Q2

REPORT INFORMATION
  Report Type: Spontaneous
  Country: US (occurrence: US)
  Receive Date: 20250521
  Receipt Date: 20250521
  Transmission Date: 20250716
  Serious: No
  Sender: CATALYST PHARMA
  Company Number: US-CATALYST PHARMACEUTICALS-US-CATA-25-00423

PATIENT
  Age: 14 Year
  Sex: Male
  Weight: 70.748 kg

DRUGS (9)
  1. AGAMREE [Suspect]
     Active Substance: VAMOROLONE
     Indication: Duchenne muscular dystrophy
     Dosage: 7.5ML ONCE DAILY
     Route: 048
     Dates: start: 20241121
  2. DUVYZAT [Suspect]
     Active Substance: GIVINOSTAT
     Indication: Duchenne muscular dystrophy
     Dosage: ONCE A DAY
     Route: 065
  3. DUVYZAT [Suspect]
     Active Substance: GIVINOSTAT
     Dosage: ONCE A DAY
     Route: 065
     Dates: start: 20250317
  4. LISINOPRIL [Concomitant]
     Active Substance: LISINOPRIL
     Indication: Cardiovascular disorder
     Dosage: 5MG ONCE A DAY
     Route: 065
  5. CARVEDILOL [Concomitant]
     Active Substance: CARVEDILOL
     Indication: Cardiovascular disorder
     Dosage: 6.25MG HALF A TABLET TWICE DAILY
     Route: 065
  6. SPIRONOLACTONE [Concomitant]
     Active Substance: SPIRONOLACTONE
     Indication: Cardiovascular disorder
     Dosage: 25MG ONCE A DAY
     Route: 065
  7. CALCIUM + VITAMIN D3 + K2 [Concomitant]
     Indication: Bone disorder
     Dosage: ONCE A DAY
     Route: 065
  8. MAGNESIUM OXIDE [Concomitant]
     Active Substance: MAGNESIUM OXIDE
     Indication: Mineral supplementation
     Dosage: 400 MG EVERY OTHER DAY
     Route: 065
  9. COENZYME Q10 [Concomitant]
     Active Substance: DIETARY SUPPLEMENT\UBIDECARENONE
     Indication: Cardiovascular disorder
     Dosage: 100MG DAILY
     Route: 065

REACTIONS (1)
  - Vomiting [Recovered/Resolved]

NARRATIVE: CASE EVENT DATE: 20250317
